FAERS Safety Report 12439468 (Version 7)
Quarter: 2016Q3

REPORT INFORMATION
  Report Type: Spontaneous
  Country: CA (occurrence: CA)
  Receive Date: 20160606
  Receipt Date: 20160906
  Transmission Date: 20161109
  Serious: Yes (Other)
  Sender: FDA-Public Use
  Company Number: CA-PFIZER INC-2016208776

PATIENT
  Age: 79 Year
  Sex: Female

DRUGS (6)
  1. TYLENOL ARTHRITIS PAIN [Concomitant]
     Active Substance: ACETAMINOPHEN
     Indication: ANALGESIC THERAPY
     Dosage: UNK
  2. PREDNISONE. [Concomitant]
     Active Substance: PREDNISONE
     Indication: PAIN
     Dosage: 10 MG
     Dates: start: 20160410, end: 20160410
  3. XELJANZ [Suspect]
     Active Substance: TOFACITINIB CITRATE
     Dosage: 5 MG, 2X/DAY
     Route: 048
     Dates: start: 20160527
  4. XELJANZ [Suspect]
     Active Substance: TOFACITINIB CITRATE
     Indication: RHEUMATOID ARTHRITIS
     Dosage: 5 MG, 2X/DAY
     Route: 048
     Dates: start: 20160405
  5. XELJANZ [Suspect]
     Active Substance: TOFACITINIB CITRATE
     Dosage: 5 MG, 2X/DAY
     Route: 048
     Dates: start: 20160616, end: 2016
  6. PREDNISONE. [Concomitant]
     Active Substance: PREDNISONE
     Dosage: 5 MG
     Dates: start: 20160411, end: 20160411

REACTIONS (12)
  - Pharyngitis [Unknown]
  - Myalgia [Not Recovered/Not Resolved]
  - Insomnia [Not Recovered/Not Resolved]
  - Neck pain [Recovered/Resolved]
  - Peripheral swelling [Not Recovered/Not Resolved]
  - Arthralgia [Not Recovered/Not Resolved]
  - Sensitivity to weather change [Not Recovered/Not Resolved]
  - Neoplasm [Not Recovered/Not Resolved]
  - Headache [Unknown]
  - Arthritis infective [Not Recovered/Not Resolved]
  - Cyst [Not Recovered/Not Resolved]
  - Ear infection [Unknown]

NARRATIVE: CASE EVENT DATE: 201604
